FAERS Safety Report 16263664 (Version 1)
Quarter: 2019Q2

REPORT INFORMATION
  Report Type: Spontaneous
  Country: JP (occurrence: JP)
  Receive Date: 20190502
  Receipt Date: 20190502
  Transmission Date: 20190711
  Serious: Yes (Other)
  Sender: FDA-Public Use
  Company Number: JP-TEVA-2019-JP-1041621

PATIENT
  Age: 76 Year
  Sex: Female

DRUGS (13)
  1. BISOPROLOL [Concomitant]
     Active Substance: BISOPROLOL
  2. LANSOPRAZOLE OD [Concomitant]
     Active Substance: LANSOPRAZOLE
     Route: 065
  3. FEBURIC [Concomitant]
     Active Substance: FEBUXOSTAT
     Route: 065
  4. BETAMETHASONE. [Concomitant]
     Active Substance: BETAMETHASONE
     Route: 065
  5. SUREPOST [Concomitant]
     Active Substance: REPAGLINIDE
     Route: 065
  6. CALONAL [Concomitant]
     Active Substance: ACETAMINOPHEN
     Route: 065
  7. E-FEN BUCCAL [Suspect]
     Active Substance: FENTANYL CITRATE
     Indication: PRODUCT USED FOR UNKNOWN INDICATION
     Route: 002
     Dates: start: 20190319
  8. VERAPAMIL HYDROCHLORIDE. [Concomitant]
     Active Substance: VERAPAMIL HYDROCHLORIDE
     Route: 065
  9. BAYASPIRIN [Concomitant]
     Active Substance: ASPIRIN
     Route: 065
  10. NAUZELIN [Concomitant]
     Active Substance: DOMPERIDONE
     Route: 065
  11. FENTOS [Concomitant]
     Active Substance: FENTANYL
     Route: 065
  12. AZOSEMIDE [Concomitant]
     Active Substance: AZOSEMIDE
     Route: 065
  13. SAMSCA [Concomitant]
     Active Substance: TOLVAPTAN
     Route: 065

REACTIONS (3)
  - Shock symptom [Recovered/Resolved]
  - Intentional product misuse [Unknown]
  - Stomatitis [Recovered/Resolved]

NARRATIVE: CASE EVENT DATE: 20190411
